APPROVED DRUG PRODUCT: MICAFUNGIN IN SODIUM CHLORIDE 0.9%
Active Ingredient: MICAFUNGIN SODIUM
Strength: EQ 100MG BASE/100ML (EQ 1MG BASE/ML)
Dosage Form/Route: SOLUTION;INTRAVENOUS
Application: N216142 | Product #002
Applicant: BAXTER HEALTHCARE CORP
Approved: Sep 29, 2023 | RLD: Yes | RS: Yes | Type: RX

PATENTS:
Patent 12403173 | Expires: Dec 15, 2037